FAERS Safety Report 4772142-2 (Version None)
Quarter: 2005Q3

REPORT INFORMATION
  Report Type: 
  Country: None (occurrence: None)
  Receive Date: 20050919
  Receipt Date: 20050907
  Transmission Date: 20060218
  Serious: Yes (Death, Hospitalization)
  Sender: FDA-Public Use
  Company Number: US-JNJFOC-20050902462

PATIENT
  Age: 14 Year
  Sex: Female

DRUGS (4)
  1. ASPIRIN [Suspect]
     Route: 048
  2. ACETAMINOPHEN/BROMPHENIRAMINE/PSEUDOEPHEDRINE [Suspect]
  3. QUETIAPINE FUMARATE [Suspect]
  4. CHLORPHENIRAMINE MALEATE [Suspect]
     Route: 048

REACTIONS (5)
  - COMPLETED SUICIDE [None]
  - CONVULSION [None]
  - DRUG EXPOSURE DURING PREGNANCY [None]
  - INTENTIONAL MISUSE [None]
  - RESPIRATION ABNORMAL [None]
